FAERS Safety Report 4523401-X (Version None)
Quarter: 2004Q4

REPORT INFORMATION
  Report Type: 
  Country: None (occurrence: None)
  Receive Date: 20041208
  Receipt Date: 20041202
  Transmission Date: 20050328
  Serious: Yes (Hospitalization)
  Sender: FDA-Public Use
  Company Number: 2004US-00410

PATIENT
  Age: 48 Year
  Sex: Female

DRUGS (3)
  1. LORAZEPAM (LORAZEPAM) TABLET, 0.5MG [Suspect]
     Dosage: SEE IMAGE
     Route: 048
     Dates: start: 20041108
  2. REMERON [Concomitant]
  3. AMBIEN [Concomitant]

REACTIONS (4)
  - COMPLETED SUICIDE [None]
  - DEPRESSION [None]
  - DRUG INEFFECTIVE [None]
  - INJURY ASPHYXIATION [None]
